FAERS Safety Report 8469542-6 (Version None)
Quarter: 2012Q2

REPORT INFORMATION
  Report Type: 
  Country: None (occurrence: None)
  Receive Date: 20120626
  Receipt Date: 20120618
  Transmission Date: 20120825
  Serious: Yes (Hospitalization)
  Sender: FDA-Public Use
  Company Number: US-ABBOTT-12P-163-0931129-00

PATIENT
  Sex: Female

DRUGS (1)
  1. HUMIRA [Suspect]
     Indication: CROHN'S DISEASE
     Dates: start: 20120102, end: 20120302

REACTIONS (5)
  - GASTROINTESTINAL INFECTION [None]
  - ILEAL STENOSIS [None]
  - INTESTINAL OBSTRUCTION [None]
  - ILEITIS [None]
  - SMALL INTESTINAL OBSTRUCTION [None]
